FAERS Safety Report 4814656-2 (Version None)
Quarter: 2005Q4

REPORT INFORMATION
  Report Type: 
  Country: None (occurrence: None)
  Receive Date: 20051028
  Receipt Date: 20041213
  Transmission Date: 20060501
  Serious: No
  Sender: FDA-Public Use
  Company Number: US-GLAXOSMITHKLINE-A0537098A

PATIENT
  Age: 9 Year
  Sex: Female
  Weight: 25.5 kg

DRUGS (2)
  1. ADVAIR DISKUS 100/50 [Suspect]
     Indication: ASTHMA
     Route: 055
     Dates: start: 20010502
  2. PROVENTIL [Concomitant]

REACTIONS (2)
  - DRUG INEFFECTIVE [None]
  - PEAK EXPIRATORY FLOW RATE DECREASED [None]
